FAERS Safety Report 6805640-8 (Version None)
Quarter: 2010Q2

REPORT INFORMATION
  Report Type: 
  Country: None (occurrence: None)
  Receive Date: 20100628
  Receipt Date: 20080110
  Transmission Date: 20101027
  Serious: Yes (Other)
  Sender: FDA-Public Use
  Company Number: US-PFIZER INC-2007094876

PATIENT
  Sex: Female
  Weight: 68 kg

DRUGS (5)
  1. GEODON [Suspect]
     Indication: BIPOLAR I DISORDER
     Route: 048
  2. EFFEXOR XR [Concomitant]
  3. GABITRIL [Concomitant]
  4. KLONOPIN [Concomitant]
     Indication: ANXIETY
  5. LUNESTA [Concomitant]
     Indication: SLEEP DISORDER

REACTIONS (3)
  - DRUG INEFFECTIVE [None]
  - INTENTIONAL DRUG MISUSE [None]
  - MANIA [None]
